FAERS Safety Report 16639235 (Version 2)
Quarter: 2019Q3

REPORT INFORMATION
  Report Type: Report from Study
  Country: PK (occurrence: PK)
  Receive Date: 20190726
  Receipt Date: 20190814
  Transmission Date: 20191004
  Serious: Yes (Hospitalization)
  Sender: FDA-Public Use
  Company Number: PHHY2019PK173545

PATIENT
  Age: 74 Year
  Sex: Female

DRUGS (1)
  1. EXELON [Suspect]
     Active Substance: RIVASTIGMINE TARTRATE
     Indication: DEMENTIA
     Dosage: 1 DF, BID
     Route: 048
     Dates: start: 20120101

REACTIONS (7)
  - Coordination abnormal [Unknown]
  - Aphasia [Unknown]
  - Motor dysfunction [Unknown]
  - Dysphagia [Unknown]
  - Gait disturbance [Unknown]
  - Cerebrovascular accident [Not Recovered/Not Resolved]
  - Balance disorder [Unknown]

NARRATIVE: CASE EVENT DATE: 20190101
